FAERS Safety Report 7937760-9 (Version None)
Quarter: 2011Q4

REPORT INFORMATION
  Report Type: 
  Country: None (occurrence: None)
  Receive Date: 20111123
  Receipt Date: 20111118
  Transmission Date: 20120403
  Serious: Yes (Other)
  Sender: FDA-Public Use
  Company Number: PHEH2011US009845

PATIENT
  Age: 65 Year
  Sex: Female

DRUGS (5)
  1. FORTEO [Suspect]
     Dosage: 1 DF, DAILY
  2. MAGNESIUM WITH CALCIUM [Concomitant]
  3. GLUCOSAMINE CALTRATE [Concomitant]
  4. RECLAST [Suspect]
     Dosage: UNK UKN, ONCE
     Route: 042
  5. CALCIUM CITRATE WITH D [Concomitant]

REACTIONS (1)
  - LOWER LIMB FRACTURE [None]
